FAERS Safety Report 17146876 (Version 1)
Quarter: 2019Q4

REPORT INFORMATION
  Report Type: Spontaneous
  Country: PL (occurrence: PL)
  Receive Date: 20191212
  Receipt Date: 20191212
  Transmission Date: 20200122
  Serious: Yes (Other)
  Sender: FDA-Public Use
  Company Number: NVSC2019PL060447

PATIENT
  Age: 35 Year
  Sex: Male

DRUGS (8)
  1. PREGABALIN. [Suspect]
     Active Substance: PREGABALIN
     Dosage: 300 MG, QD (2 X 150 MG / DAY)
     Route: 065
  2. ESCITALOPRAM [Suspect]
     Active Substance: ESCITALOPRAM OXALATE
     Dosage: 5 MG, QD
     Route: 065
  3. TRAZODONE [Suspect]
     Active Substance: TRAZODONE HYDROCHLORIDE
     Indication: PRODUCT USED FOR UNKNOWN INDICATION
     Dosage: 50 MG
     Route: 065
  4. ESCITALOPRAM [Suspect]
     Active Substance: ESCITALOPRAM OXALATE
     Dosage: 20 MG, QD
     Route: 065
  5. ESCITALOPRAM [Suspect]
     Active Substance: ESCITALOPRAM OXALATE
     Indication: PRODUCT USED FOR UNKNOWN INDICATION
     Dosage: 10 MG, QD
     Route: 065
  6. ESCITALOPRAM [Suspect]
     Active Substance: ESCITALOPRAM OXALATE
     Dosage: 15 MG, QD
     Route: 065
  7. PREGABALIN. [Suspect]
     Active Substance: PREGABALIN
     Indication: ANXIETY DISORDER
     Dosage: 150 MG (2 X 75 MG )
     Route: 065
  8. ZOLPIDEM [Suspect]
     Active Substance: ZOLPIDEM TARTRATE
     Indication: PRODUCT USED FOR UNKNOWN INDICATION
     Dosage: 10 MG, QD (NIGHT ON ADHOC BASIS)
     Route: 065

REACTIONS (24)
  - Ejaculation disorder [Unknown]
  - Anxiety [Unknown]
  - Emotional disorder [Unknown]
  - Headache [Unknown]
  - Decreased appetite [Unknown]
  - Somatic symptom disorder [Unknown]
  - Tremor [Unknown]
  - Palpitations [Unknown]
  - Dizziness [Unknown]
  - Dyspnoea [Unknown]
  - Nausea [Unknown]
  - Hyperhidrosis [Unknown]
  - Stress at work [Unknown]
  - Depressed mood [Recovered/Resolved]
  - Asthenia [Unknown]
  - Dry mouth [Unknown]
  - Persistent depressive disorder [Unknown]
  - Erectile dysfunction [Unknown]
  - Impaired work ability [Recovered/Resolved]
  - Somnolence [Unknown]
  - Constipation [Unknown]
  - Chest pain [Unknown]
  - Blood pressure increased [Unknown]
  - Hypertonia [Unknown]
